FAERS Safety Report 11331452 (Version 1)
Quarter: 2015Q3

REPORT INFORMATION
  Report Type: Spontaneous
  Country: US (occurrence: US)
  Receive Date: 20150803
  Receipt Date: 20150803
  Transmission Date: 20151125
  Serious: No
  Sender: FDA-Public Use
  Company Number: CHPA2015US009076

PATIENT
  Age: 54 Year
  Sex: Male

DRUGS (1)
  1. VOLTAREN [Suspect]
     Active Substance: DICLOFENAC SODIUM
     Indication: ARTHRALGIA
     Dosage: 4 G, QID
     Route: 061
     Dates: start: 201506, end: 20150724

REACTIONS (4)
  - Application site exfoliation [Recovering/Resolving]
  - Drug ineffective for unapproved indication [Unknown]
  - Application site haemorrhage [Recovered/Resolved]
  - Application site vesicles [Recovering/Resolving]

NARRATIVE: CASE EVENT DATE: 201506
